FAERS Safety Report 19726132 (Version 1)
Quarter: 2021Q3

REPORT INFORMATION
  Report Type: Spontaneous
  Country: US (occurrence: US)
  Receive Date: 20210820
  Receipt Date: 20210820
  Transmission Date: 20211014
  Serious: No
  Sender: FDA-Public Use
  Company Number: US-ORGANON-O2108USA001276

PATIENT
  Age: 44 Year
  Sex: Female
  Weight: 100.68 kg

DRUGS (2)
  1. NEXPLANON [Suspect]
     Active Substance: ETONOGESTREL
     Indication: CONTRACEPTION
     Dosage: 1 DOSAGE FORM
     Route: 059
     Dates: end: 20210722
  2. NEXPLANON [Suspect]
     Active Substance: ETONOGESTREL
     Dosage: 1 DOSAGE FORM, LEFT ARM
     Route: 059
     Dates: start: 20210722

REACTIONS (3)
  - Incorrect product administration duration [Unknown]
  - Medical device site discomfort [Unknown]
  - Implant site pain [Unknown]

NARRATIVE: CASE EVENT DATE: 2021
